FAERS Safety Report 10256933 (Version 1)
Quarter: 2014Q2

REPORT INFORMATION
  Report Type: Not Available
  Country: CH (occurrence: CH)
  Receive Date: 20140625
  Receipt Date: 20140625
  Transmission Date: 20141212
  Serious: Yes (Other)
  Sender: FDA-Public Use
  Company Number: CH-BEH-2014043230

PATIENT
  Age: 37 Year
  Sex: Male

DRUGS (8)
  1. PRIVIGEN [Suspect]
     Indication: GUILLAIN-BARRE SYNDROME
     Dosage: 0.4 G/KG /DAY/ FIRST CYCLE
     Dates: start: 20140131, end: 20140204
  2. PRIVIGEN [Suspect]
     Dosage: 0.4 G/KG /DAY/CYCLE SECOND CYCLE
     Dates: start: 20140214, end: 20140218
  3. LYRICA [Suspect]
     Route: 048
     Dates: start: 20140205, end: 20140331
  4. LYRICA [Suspect]
     Indication: NEURALGIA
     Dosage: 3 X 75 MG
     Route: 048
     Dates: start: 20140205, end: 20140226
  5. LYRICA [Suspect]
     Dosage: 4 X 75 MG
     Route: 048
     Dates: start: 20140303, end: 20140304
  6. LYRICA [Suspect]
     Dosage: 3 X 75 MG
     Route: 048
     Dates: start: 20140312, end: 20140312
  7. LYRICA [Suspect]
     Dosage: 2 X 75 MG
     Route: 048
     Dates: start: 20140320, end: 20140320
  8. FRAGMIN [Concomitant]
     Indication: THROMBOSIS PROPHYLAXIS
     Dosage: STRENGTH: UNSPEC
     Route: 058
     Dates: start: 20140131, end: 20140331

REACTIONS (5)
  - Liver disorder [Recovering/Resolving]
  - Hepatosplenomegaly [Recovering/Resolving]
  - Aspartate aminotransferase increased [Recovering/Resolving]
  - Alanine aminotransferase increased [Recovering/Resolving]
  - Gamma-glutamyltransferase increased [Recovering/Resolving]
